FAERS Safety Report 8743047 (Version 2)
Quarter: 2013Q4

REPORT INFORMATION
  Report Type: Spontaneous
  Country: US (occurrence: US)
  Receive Date: 20120824
  Receipt Date: 20131101
  Transmission Date: 20140711
  Serious: No
  Sender: FDA-Public Use
  Company Number: US-009507513-1208USA008400

PATIENT
  Age: 81 Year
  Sex: Female

DRUGS (4)
  1. NASONEX [Suspect]
     Dosage: 2 DF, QD
     Route: 055
     Dates: start: 20120717
  2. GLUCOTROL [Concomitant]
  3. ACTOS [Concomitant]
  4. METFORMIN [Concomitant]

REACTIONS (3)
  - Dry eye [Not Recovered/Not Resolved]
  - Eye pruritus [Not Recovered/Not Resolved]
  - Eye irritation [Not Recovered/Not Resolved]
